FAERS Safety Report 7690287-4 (Version None)
Quarter: 2011Q3

REPORT INFORMATION
  Report Type: 
  Country: None (occurrence: None)
  Receive Date: 20110818
  Receipt Date: 20110815
  Transmission Date: 20111222
  Serious: Yes (Hospitalization, Other)
  Sender: FDA-Public Use
  Company Number: US-ELI_LILLY_AND_COMPANY-US201108004577

PATIENT
  Sex: Male
  Weight: 117.91 kg

DRUGS (5)
  1. ASACOL [Concomitant]
  2. PROTONIX [Concomitant]
     Dosage: 40 MG, QD
  3. BYETTA [Suspect]
     Dosage: 5 UG, BID
     Dates: start: 20060610, end: 20080801
  4. GLUCOPHAGE [Concomitant]
     Dosage: 500 MG, EACH EVENING
  5. GLUCOPHAGE [Concomitant]
     Dosage: 1000 MG, EACH MORNING

REACTIONS (1)
  - PANCREATITIS [None]
